FAERS Safety Report 22863231 (Version 4)
Quarter: 2023Q4

REPORT INFORMATION
  Report Type: Spontaneous
  Country: CZ (occurrence: CZ)
  Receive Date: 20230824
  Receipt Date: 20231004
  Transmission Date: 20240110
  Serious: Yes (Life-Threatening, Hospitalization, Other)
  Sender: FDA-Public Use
  Company Number: CZ-002147023-NVSC2023CZ182032

PATIENT
  Age: 38 Year
  Sex: Female
  Weight: 70 kg

DRUGS (8)
  1. AIMOVIG [Suspect]
     Active Substance: ERENUMAB-AOOE
     Indication: Migraine
     Dosage: 1 DOSAGE FORM, QMO
     Route: 058
     Dates: start: 20230511
  2. AIMOVIG [Suspect]
     Active Substance: ERENUMAB-AOOE
     Dosage: 1 DOSAGE FORM, QMO
     Route: 058
     Dates: start: 20230609
  3. AIMOVIG [Suspect]
     Active Substance: ERENUMAB-AOOE
     Dosage: 1 DOSAGE FORM, QMO
     Route: 058
     Dates: start: 20230711
  4. AIMOVIG [Suspect]
     Active Substance: ERENUMAB-AOOE
     Dosage: 1 DOSAGE FORM, QMO
     Route: 058
     Dates: start: 20230808, end: 20230808
  5. EUTHYROX [Concomitant]
     Active Substance: LEVOTHYROXINE SODIUM
     Indication: Product used for unknown indication
     Dosage: 100 UG (1-0- 0 FROM MON TO FRI)
     Route: 065
  6. EUTHYROX [Concomitant]
     Active Substance: LEVOTHYROXINE SODIUM
     Dosage: 150 UG (1-0- 0 SAT AND SUN)
     Route: 065
  7. INDOMETHACIN [Concomitant]
     Active Substance: INDOMETHACIN
     Indication: Migraine
     Dosage: 100 MG (AS NEED ED IN MIGRAINE)
     Route: 065
  8. RELPAX [Concomitant]
     Active Substance: ELETRIPTAN HYDROBROMIDE
     Indication: Migraine
     Dosage: 40 MG (AS NEED ED IN MIGRAINE)
     Route: 065

REACTIONS (30)
  - Henoch-Schonlein purpura [Unknown]
  - Oesophageal motility disorder [Unknown]
  - Skin necrosis [Unknown]
  - Gastrointestinal disorder [Unknown]
  - Rash [Recovered/Resolved]
  - Rash [Recovered/Resolved]
  - Urticaria [Recovered/Resolved]
  - Abdominal pain [Unknown]
  - Dysphagia [Unknown]
  - Abdominal pain upper [Unknown]
  - Gastric ulcer [Unknown]
  - Oesophageal ulcer [Unknown]
  - Abdominal discomfort [Unknown]
  - Vasculitis [Unknown]
  - Necrosis [Unknown]
  - Hypothyroidism [Unknown]
  - Cutaneous vasculitis [Unknown]
  - Gastritis [Unknown]
  - Oesophagitis [Unknown]
  - Duodenogastric reflux [Unknown]
  - Vomiting [Unknown]
  - Diarrhoea [Unknown]
  - Eating disorder [Unknown]
  - Enteritis [Unknown]
  - Mesenteric lymphadenitis [Unknown]
  - Pelvic fluid collection [Unknown]
  - Pleural effusion [Unknown]
  - Petechiae [Recovering/Resolving]
  - Fatigue [Unknown]
  - Rash [Unknown]

NARRATIVE: CASE EVENT DATE: 20230101
